FAERS Safety Report 17230412 (Version 1)
Quarter: 2020Q1

REPORT INFORMATION
  Report Type: Spontaneous
  Country: US (occurrence: US)
  Receive Date: 20200103
  Receipt Date: 20200103
  Transmission Date: 20200409
  Serious: No
  Sender: FDA-Public Use
  Company Number: US-PERRIGO-19US000094

PATIENT
  Age: 68 Year
  Sex: Female

DRUGS (1)
  1. HYDROCORTISONE. [Suspect]
     Active Substance: HYDROCORTISONE
     Indication: INFECTION
     Dosage: 1 APPLICATION, BID
     Route: 061
     Dates: start: 20181231, end: 20190102

REACTIONS (4)
  - Application site pruritus [Not Recovered/Not Resolved]
  - Off label use [Recovered/Resolved]
  - Application site erythema [Not Recovered/Not Resolved]
  - Application site swelling [Not Recovered/Not Resolved]

NARRATIVE: CASE EVENT DATE: 20181221
